FAERS Safety Report 21601967 (Version 2)
Quarter: 2022Q4

REPORT INFORMATION
  Report Type: Spontaneous
  Country: US (occurrence: US)
  Receive Date: 20221116
  Receipt Date: 20221117
  Transmission Date: 20230113
  Serious: Yes (Hospitalization)
  Sender: FDA-Public Use
  Company Number: US-JNJFOC-20221118381

PATIENT
  Age: 45 Year
  Sex: Male

DRUGS (2)
  1. TYLENOL EXTRA STRENGTH [Suspect]
     Active Substance: ACETAMINOPHEN
     Indication: Product used for unknown indication
     Dosage: LESS THAN 24 HR LESS THAN EQUAL TO 1 WEEK, HE HAD BEEN TAKING 1G Q 3H X SEVERAL DAYS
     Route: 048
  2. WARFARIN [Concomitant]
     Active Substance: WARFARIN
     Indication: Product used for unknown indication
     Route: 065

REACTIONS (6)
  - Ammonia increased [Unknown]
  - Blood creatine increased [Unknown]
  - Jaundice [Not Recovered/Not Resolved]
  - Prothrombin time prolonged [Unknown]
  - International normalised ratio increased [Unknown]
  - Overdose [Unknown]
